FAERS Safety Report 6751226-3 (Version None)
Quarter: 2010Q2

REPORT INFORMATION
  Report Type: 
  Country: None (occurrence: None)
  Receive Date: 20100526
  Receipt Date: 20100401
  Transmission Date: 20101027
  Serious: No
  Sender: FDA-Public Use
  Company Number: 306831

PATIENT
  Sex: Male

DRUGS (1)
  1. VICTOZA [Suspect]
     Indication: DRUG USE FOR UNKNOWN INDICATION
     Dosage: , SUBCUTANEOUS
     Route: 058

REACTIONS (1)
  - BLOOD GLUCOSE INCREASED [None]
